FAERS Safety Report 15237571 (Version 2)
Quarter: 2018Q4

REPORT INFORMATION
  Report Type: Spontaneous
  Country: US (occurrence: US)
  Receive Date: 20180803
  Receipt Date: 20181127
  Transmission Date: 20190204
  Serious: No
  Sender: FDA-Public Use
  Company Number: US-SA-2018SA208255

PATIENT
  Age: 31 Year
  Sex: Female

DRUGS (1)
  1. CEREZYME [Suspect]
     Active Substance: IMIGLUCERASE
     Indication: GAUCHER^S DISEASE
     Dosage: UNK UNK, UNK
     Route: 041
     Dates: start: 2018, end: 20180713

REACTIONS (13)
  - Back pain [Unknown]
  - Platelet count decreased [Unknown]
  - Blood count abnormal [Unknown]
  - Splenomegaly [Unknown]
  - Exposure during pregnancy [Unknown]
  - Haemoglobin decreased [Unknown]
  - Vitamin B12 decreased [Unknown]
  - Blood bilirubin increased [Unknown]
  - Gaucher^s disease [Unknown]
  - Musculoskeletal stiffness [Unknown]
  - Pain in extremity [Unknown]
  - Palpitations [Unknown]
  - Haematocrit [Unknown]

NARRATIVE: CASE EVENT DATE: 20180713
